FAERS Safety Report 10099571 (Version 1)
Quarter: 2014Q2

REPORT INFORMATION
  Report Type: Spontaneous
  Country: US (occurrence: US)
  Receive Date: 20140423
  Receipt Date: 20140423
  Transmission Date: 20141212
  Serious: Yes (Other)
  Sender: FDA-Public Use
  Company Number: US-TEVA-476852USA

PATIENT
  Sex: Male
  Weight: 138.47 kg

DRUGS (3)
  1. TREANDA [Suspect]
     Indication: MANTLE CELL LYMPHOMA
     Dosage: 240 MG FOR TWO CONSECUTIVE DAYS
  2. ASPIRIN [Concomitant]
     Indication: PROPHYLAXIS
  3. PAXIL [Concomitant]
     Indication: DEPRESSION

REACTIONS (3)
  - Rash [Not Recovered/Not Resolved]
  - Disease progression [Not Recovered/Not Resolved]
  - White blood cell count increased [Not Recovered/Not Resolved]
